FAERS Safety Report 8514001-5 (Version None)
Quarter: 2012Q3

REPORT INFORMATION
  Report Type: 
  Country: None (occurrence: None)
  Receive Date: 20120705
  Receipt Date: 20120627
  Transmission Date: 20120928
  Serious: Yes (Hospitalization, Other)
  Sender: FDA-Public Use
  Company Number: 2012SP036346

PATIENT
  Sex: Female

DRUGS (3)
  1. RIBAVIRIN [Suspect]
     Indication: HEPATITIS C
     Dates: start: 20120319, end: 20120615
  2. PEG-INTRON [Suspect]
     Indication: HEPATITIS C
     Dates: start: 20120319, end: 20120615
  3. VICTRELIS [Suspect]
     Indication: HEPATITIS C
     Dates: start: 20120410, end: 20120615

REACTIONS (7)
  - BALANCE DISORDER [None]
  - ABASIA [None]
  - ROAD TRAFFIC ACCIDENT [None]
  - FALL [None]
  - WHITE BLOOD CELL COUNT DECREASED [None]
  - LOSS OF CONSCIOUSNESS [None]
  - MENTAL DISORDER [None]
